FAERS Safety Report 6770816-5 (Version None)
Quarter: 2010Q2

REPORT INFORMATION
  Report Type: 
  Country: None (occurrence: None)
  Receive Date: 20100614
  Receipt Date: 20100614
  Transmission Date: 20101027
  Serious: Yes (Other)
  Sender: FDA-Public Use
  Company Number: None

PATIENT
  Sex: Female

DRUGS (1)
  1. ADVAIR DISKUS 250/50 [Suspect]
     Indication: MULTIPLE ALLERGIES
     Dosage: 1 PUFF BID INH.
     Route: 055
     Dates: start: 20090701, end: 20100101

REACTIONS (3)
  - ASTHMA [None]
  - IMPAIRED HEALING [None]
  - STOMATITIS [None]
